FAERS Safety Report 10179008 (Version 1)
Quarter: 2014Q2

REPORT INFORMATION
  Report Type: Spontaneous
  Country: US (occurrence: US)
  Receive Date: 20140519
  Receipt Date: 20140519
  Transmission Date: 20141212
  Serious: No
  Sender: FDA-Public Use
  Company Number: US-BIOGENIDEC-2014BI041548

PATIENT
  Age: 51 Year
  Sex: Female

DRUGS (17)
  1. TECFIDERA [Suspect]
     Indication: PRODUCT USED FOR UNKNOWN INDICATION
     Dates: start: 201403
  2. AMPYRA [Concomitant]
     Indication: PRODUCT USED FOR UNKNOWN INDICATION
     Route: 048
  3. ZANAFLEX [Concomitant]
     Indication: PRODUCT USED FOR UNKNOWN INDICATION
  4. SELENIUM [Concomitant]
  5. PRIMROSE OIL [Concomitant]
  6. VITAMIN D3 [Concomitant]
  7. LIDODERM [Concomitant]
  8. ZINC [Concomitant]
  9. CRANBERRY [Concomitant]
  10. OMEGA 3-6-9 [Concomitant]
  11. CALCIUM CITRATE [Concomitant]
  12. NEURONTIN [Concomitant]
  13. PROVIGIL [Concomitant]
  14. BACLOFEN [Concomitant]
  15. WELLBUTRIN [Concomitant]
  16. METOPROLOL [Concomitant]
  17. ESTRADIOL [Concomitant]

REACTIONS (5)
  - Peripheral swelling [Not Recovered/Not Resolved]
  - Headache [Not Recovered/Not Resolved]
  - Flushing [Not Recovered/Not Resolved]
  - Vomiting [Not Recovered/Not Resolved]
  - Nausea [Not Recovered/Not Resolved]
